FAERS Safety Report 18752525 (Version 4)
Quarter: 2021Q2

REPORT INFORMATION
  Report Type: Spontaneous
  Country: JP (occurrence: JP)
  Receive Date: 20210118
  Receipt Date: 20210624
  Transmission Date: 20210717
  Serious: Yes (Death, Other)
  Sender: FDA-Public Use
  Company Number: JP-SA-2021SA012167

PATIENT
  Age: 50 Year
  Sex: Male
  Weight: 57.1 kg

DRUGS (9)
  1. BEVACIZUMAB. [Suspect]
     Active Substance: BEVACIZUMAB
     Indication: COLON CANCER
     Route: 041
  2. FLUOROURACIL. [Suspect]
     Active Substance: FLUOROURACIL
     Indication: COLON CANCER
     Dosage: UNK UNK, QCY
     Route: 065
  3. TIPIRACIL;TRIFLURIDINE [Suspect]
     Active Substance: TIPIRACIL HYDROCHLORIDE\TRIFLURIDINE
     Indication: COLON CANCER
  4. CAPECITABINE. [Concomitant]
     Active Substance: CAPECITABINE
  5. ELPLAT [Suspect]
     Active Substance: OXALIPLATIN
     Indication: COLON CANCER
     Dosage: ONCE IN 2WEEKS SOLUTION FOR INJECTION/INFUSION
     Route: 041
  6. CALCIUM LEVOFOLINATE [Suspect]
     Active Substance: LEVOLEUCOVORIN CALCIUM
     Indication: COLON CANCER
     Dosage: ONCE IN 2WEEKS, INTRAVENOUS INFUSION
     Route: 041
  7. IRINOTECAN [Suspect]
     Active Substance: IRINOTECAN
     Indication: COLON CANCER
  8. PANITUMUMAB [Suspect]
     Active Substance: PANITUMUMAB
     Indication: COLON CANCER
     Dosage: UNK, QCY
     Route: 065
  9. GIMERACIL;OTERACIL;TEGAFUR [Suspect]
     Active Substance: GIMERACIL\OTERACIL\TEGAFUR
     Indication: COLON CANCER
     Route: 048

REACTIONS (22)
  - Pyelonephritis [Unknown]
  - Cardio-respiratory arrest [Fatal]
  - Pulmonary artery thrombosis [Fatal]
  - Hypersplenism [Fatal]
  - Pneumonia [Unknown]
  - Cardiac ventricular thrombosis [Fatal]
  - Splenomegaly [Fatal]
  - Reflux gastritis [Unknown]
  - Oesophagitis [Unknown]
  - Therapy partial responder [Unknown]
  - Thyroid atrophy [Unknown]
  - Gastrooesophageal reflux disease [Unknown]
  - Hypoaesthesia [Unknown]
  - Hypovolaemia [Unknown]
  - Pain in extremity [Unknown]
  - Vasodilatation [Fatal]
  - Depressed level of consciousness [Unknown]
  - Hepatic fibrosis [Unknown]
  - Ascites [Unknown]
  - Portal hypertension [Fatal]
  - Malignant neoplasm progression [Unknown]
  - Endothelial dysfunction [Unknown]
